FAERS Safety Report 5909298-1 (Version None)
Quarter: 2008Q4

REPORT INFORMATION
  Report Type: 
  Country: None (occurrence: None)
  Receive Date: 20081006
  Receipt Date: 20081003
  Transmission Date: 20090506
  Serious: Yes (Other)
  Sender: FDA-Public Use
  Company Number: CA-WYE-G02241408

PATIENT
  Sex: Female
  Weight: 73 kg

DRUGS (15)
  1. SIROLIMUS [Suspect]
     Indication: IMMUNOSUPPRESSION
     Route: 048
     Dates: start: 20080801, end: 20080802
  2. SIROLIMUS [Suspect]
     Route: 048
     Dates: start: 20080802
  3. METOPROLOL TARTRATE [Concomitant]
     Dosage: 50 MG EVERY
     Route: 048
     Dates: start: 20080812, end: 20080919
  4. METOPROLOL TARTRATE [Concomitant]
     Dosage: 100 MG EVERY
     Route: 048
     Dates: start: 20080920
  5. ZENAPAX [Concomitant]
     Indication: IMMUNOSUPPRESSION
     Dates: start: 20080506, end: 20080506
  6. ZENAPAX [Concomitant]
     Dates: start: 20080520, end: 20080520
  7. MYFORTIC [Concomitant]
     Dates: start: 20080506, end: 20080512
  8. MYFORTIC [Concomitant]
     Dates: start: 20080513, end: 20080821
  9. PREDNISONE TAB [Concomitant]
     Dates: start: 20080506, end: 20080506
  10. PREDNISONE TAB [Concomitant]
     Dates: start: 20080528, end: 20080731
  11. PREDNISONE TAB [Concomitant]
     Dates: start: 20080801, end: 20080924
  12. NORVASC [Concomitant]
     Route: 048
     Dates: start: 20080509, end: 20080813
  13. NORVASC [Concomitant]
     Route: 048
     Dates: start: 20080828, end: 20080919
  14. TACROLIMUS [Concomitant]
     Route: 048
     Dates: start: 20080508, end: 20080512
  15. TACROLIMUS [Concomitant]
     Route: 048
     Dates: start: 20080614, end: 20080731

REACTIONS (1)
  - KIDNEY TRANSPLANT REJECTION [None]
